FAERS Safety Report 7108114-2 (Version None)
Quarter: 2010Q4

REPORT INFORMATION
  Report Type: 
  Country: None (occurrence: None)
  Receive Date: 20101117
  Receipt Date: 20101111
  Transmission Date: 20110411
  Serious: No
  Sender: FDA-Public Use
  Company Number: US-ELI_LILLY_AND_COMPANY-US201010000580

PATIENT
  Sex: Male
  Weight: 92.063 kg

DRUGS (1)
  1. CIALIS [Suspect]
     Indication: PROPHYLAXIS
     Dosage: 5 MG, UNKNOWN
     Route: 065

REACTIONS (1)
  - OFF LABEL USE [None]
